FAERS Safety Report 5662250-6 (Version None)
Quarter: 2008Q1

REPORT INFORMATION
  Report Type: 
  Country: None (occurrence: None)
  Receive Date: 20080312
  Receipt Date: 20080229
  Transmission Date: 20080703
  Serious: Yes (Other)
  Sender: FDA-Public Use
  Company Number: US-PFIZER INC-2008010560

PATIENT
  Sex: Female
  Weight: 78.181 kg

DRUGS (11)
  1. LYRICA [Suspect]
     Indication: PAIN
  2. LYRICA [Suspect]
     Indication: NEUROPATHY PERIPHERAL
  3. LYRICA [Suspect]
     Indication: FIBROMYALGIA
  4. PREDNISONE [Concomitant]
  5. ENBREL [Concomitant]
  6. RIDAURA [Concomitant]
  7. FOSAMAX [Concomitant]
  8. UNITHROID [Concomitant]
  9. ATENOLOL AND CHLORTHALIDONE [Concomitant]
  10. TRICOR [Concomitant]
  11. MULTIVITAMINS WITH MINERALS [Concomitant]

REACTIONS (8)
  - BACK PAIN [None]
  - CONSTIPATION [None]
  - DRUG INTOLERANCE [None]
  - GASTROINTESTINAL DISORDER [None]
  - GASTROINTESTINAL HYPERMOTILITY [None]
  - PALPITATIONS [None]
  - POOR QUALITY SLEEP [None]
  - SOMNOLENCE [None]
